FAERS Safety Report 9615637 (Version 1)
Quarter: 2013Q4

REPORT INFORMATION
  Report Type: Spontaneous
  Country: US (occurrence: US)
  Receive Date: 20131011
  Receipt Date: 20131011
  Transmission Date: 20140711
  Serious: No
  Sender: FDA-Public Use
  Company Number: US-009507513-1310USA005342

PATIENT
  Age: 43 Year
  Sex: Female

DRUGS (4)
  1. SAPHRIS [Suspect]
     Indication: BIPOLAR I DISORDER
     Dosage: 10 MG, BID
     Route: 060
     Dates: start: 201210, end: 201305
  2. LAMICTAL [Concomitant]
  3. LITHIUM [Concomitant]
  4. TRAZODONE HYDROCHLORIDE [Concomitant]

REACTIONS (1)
  - Bone pain [Recovered/Resolved]
